FAERS Safety Report 25931339 (Version 1)
Quarter: 2025Q4

REPORT INFORMATION
  Report Type: Spontaneous
  Country: US (occurrence: None)
  Receive Date: 20251016
  Receipt Date: 20251016
  Transmission Date: 20260117
  Serious: Yes (Other)
  Sender: FDA-CTU
  Company Number: None

PATIENT
  Age: 45 Year
  Sex: Female
  Weight: 82.55 kg

DRUGS (5)
  1. CYANOCOBALAMIN [Suspect]
     Active Substance: CYANOCOBALAMIN
     Indication: Weight decreased
     Dosage: OTHER STRENGTH : 18/500 MG/UG/ML;?
     Route: 058
  2. CETIRIZINE [Concomitant]
     Active Substance: CETIRIZINE HYDROCHLORIDE
  3. OMEPRAZOLE [Concomitant]
     Active Substance: OMEPRAZOLE
  4. LAMOTRIGINE [Concomitant]
     Active Substance: LAMOTRIGINE
  5. LEVOTHYROXINE [Concomitant]
     Active Substance: LEVOTHYROXINE

REACTIONS (7)
  - Documented hypersensitivity to administered product [None]
  - Product preparation error [None]
  - Product formulation issue [None]
  - Product advertising issue [None]
  - Product dispensing error [None]
  - Product communication issue [None]
  - Victim of crime [None]

NARRATIVE: CASE EVENT DATE: 20251001
